FAERS Safety Report 9903791 (Version 1)
Quarter: 2014Q1

REPORT INFORMATION
  Report Type: Spontaneous
  Country: US (occurrence: US)
  Receive Date: 20140218
  Receipt Date: 20140218
  Transmission Date: 20141002
  Serious: Yes (Death)
  Sender: FDA-Public Use
  Company Number: US-ROCHE-1346014

PATIENT
  Age: 70 Year
  Sex: Male

DRUGS (2)
  1. RITUXAN [Suspect]
     Indication: MICROSCOPIC POLYANGIITIS
     Route: 065
  2. RITUXAN [Suspect]
     Indication: GLOMERULONEPHRITIS RAPIDLY PROGRESSIVE

REACTIONS (5)
  - Sepsis syndrome [Fatal]
  - Renal failure [Fatal]
  - Gastrointestinal haemorrhage [Fatal]
  - Multi-organ failure [Fatal]
  - Clostridium difficile infection [Unknown]
